FAERS Safety Report 9922239 (Version 1)
Quarter: 2014Q1

REPORT INFORMATION
  Report Type: Report from Study
  Country: AU (occurrence: AU)
  Receive Date: 20140225
  Receipt Date: 20140225
  Transmission Date: 20141002
  Serious: Yes (Other)
  Sender: FDA-Public Use
  Company Number: AU-SA-2014SA021307

PATIENT
  Sex: Male

DRUGS (10)
  1. RENAGEL [Suspect]
     Indication: PRODUCT USED FOR UNKNOWN INDICATION
     Route: 065
     Dates: start: 20120201
  2. RENAGEL [Suspect]
     Indication: PRODUCT USED FOR UNKNOWN INDICATION
     Route: 065
  3. NEXIUM [Concomitant]
  4. CALCITROL [Concomitant]
  5. METOPROLOL [Concomitant]
  6. IKOREL [Concomitant]
  7. PLAVIX [Concomitant]
  8. ALLOPURINOL [Concomitant]
  9. CAL-SUP [Concomitant]
  10. RAMIPRIL [Concomitant]

REACTIONS (7)
  - Transient ischaemic attack [Unknown]
  - Nausea [Not Recovered/Not Resolved]
  - Vomiting [Unknown]
  - Myocardial infarction [Unknown]
  - Memory impairment [Unknown]
  - Abnormal behaviour [Unknown]
  - General physical health deterioration [Unknown]
